FAERS Safety Report 9414121 (Version 1)
Quarter: 2013Q3

REPORT INFORMATION
  Report Type: Spontaneous
  Country: TN (occurrence: TN)
  Receive Date: 20130723
  Receipt Date: 20130723
  Transmission Date: 20140515
  Serious: Yes (Other)
  Sender: FDA-Public Use
  Company Number: TN-ROCHE-1251652

PATIENT
  Age: 28 Year
  Sex: Male

DRUGS (3)
  1. COPEGUS [Suspect]
     Indication: CHRONIC HEPATITIS C
     Route: 048
     Dates: start: 20130415, end: 20130615
  2. PEGASYS [Suspect]
     Indication: CHRONIC HEPATITIS C
     Route: 058
     Dates: start: 20130415
  3. PEGASYS [Suspect]
     Route: 058

REACTIONS (1)
  - Renal failure acute [Recovering/Resolving]
